FAERS Safety Report 19621603 (Version 1)
Quarter: 2021Q3

REPORT INFORMATION
  Report Type: Report from Study
  Country: BR (occurrence: BR)
  Receive Date: 20210728
  Receipt Date: 20210728
  Transmission Date: 20211014
  Serious: Yes (Death, Other)
  Sender: FDA-Public Use
  Company Number: NVSC2021BR167917

PATIENT
  Age: 48 Year
  Sex: Male

DRUGS (2)
  1. DABRAFENIB [Suspect]
     Active Substance: DABRAFENIB
     Indication: MALIGNANT MELANOMA
     Dosage: UNK
     Route: 065
  2. TRAMETINIB [Suspect]
     Active Substance: TRAMETINIB
     Indication: MALIGNANT MELANOMA
     Dosage: UNK
     Route: 065

REACTIONS (8)
  - Metastatic malignant melanoma [Fatal]
  - Hyperpyrexia [Recovered/Resolved]
  - General physical health deterioration [Fatal]
  - Nausea [Recovered/Resolved]
  - Arthralgia [Recovered/Resolved]
  - Neurogenic tumour [Fatal]
  - Malignant neoplasm progression [Fatal]
  - Back pain [Unknown]
